FAERS Safety Report 8612390-4 (Version None)
Quarter: 2012Q3

REPORT INFORMATION
  Report Type: 
  Country: None (occurrence: None)
  Receive Date: 20120813
  Receipt Date: 20120813
  Transmission Date: 20120928
  Serious: Yes (Hospitalization)
  Sender: FDA-Public Use
  Company Number: None

PATIENT
  Age: 67 Year
  Sex: Female

DRUGS (1)
  1. ENBREL [Suspect]
     Indication: RHEUMATOID ARTHRITIS
     Dosage: 25 MG TWICE WEEKLY SUBCUTANEOUS
     Route: 058
     Dates: start: 20091021, end: 20120726

REACTIONS (3)
  - LYMPHADENOPATHY [None]
  - DYSPNOEA [None]
  - ABASIA [None]
